FAERS Safety Report 6005486-7 (Version None)
Quarter: 2008Q4

REPORT INFORMATION
  Report Type: 
  Country: None (occurrence: None)
  Receive Date: 20081215
  Receipt Date: 20081201
  Transmission Date: 20090506
  Serious: Yes (Other)
  Sender: FDA-Public Use
  Company Number: 2008AL012154

PATIENT

DRUGS (4)
  1. CITALOPRAM HYDROBROMIDE [Suspect]
     Indication: DRUG USE FOR UNKNOWN INDICATION
     Dosage: 2700 MG; PO
     Route: 048
  2. BENZODIAZEPINE [Concomitant]
  3. ...................... [Concomitant]
  4. ETHANOL [Concomitant]

REACTIONS (5)
  - ALCOHOL POISONING [None]
  - CONVULSION [None]
  - DRUG TOXICITY [None]
  - ELECTROCARDIOGRAM QT PROLONGED [None]
  - TACHYCARDIA [None]
